FAERS Safety Report 10300856 (Version 2)
Quarter: 2014Q3

REPORT INFORMATION
  Report Type: Report from Study
  Country: CA (occurrence: CA)
  Receive Date: 20140714
  Receipt Date: 20140727
  Transmission Date: 20150326
  Serious: Yes (Hospitalization)
  Sender: FDA-Public Use
  Company Number: CA-BRISTOL-MYERS SQUIBB COMPANY-21181334

PATIENT
  Age: 76 Year
  Sex: Male

DRUGS (10)
  1. RANITIDINE [Concomitant]
     Active Substance: RANITIDINE\RANITIDINE HYDROCHLORIDE
  2. RISEDRONATE SODIUM. [Concomitant]
     Active Substance: RISEDRONATE SODIUM
  3. LOVASTATIN. [Concomitant]
     Active Substance: LOVASTATIN
  4. RIVASA [Concomitant]
     Active Substance: ASPIRIN
  5. MYCOPHENOLATE MOFETIL. [Concomitant]
     Active Substance: MYCOPHENOLATE MOFETIL
  6. CALCIUM [Concomitant]
     Active Substance: CALCIUM
  7. ATORVASTATIN [Concomitant]
     Active Substance: ATORVASTATIN
  8. ORENCIA [Suspect]
     Active Substance: ABATACEPT
     Indication: RHEUMATOID ARTHRITIS
     Dosage: LAST INFUSION WAS 06JUL14
     Route: 042
     Dates: start: 20120125
  9. EZETROL [Concomitant]
     Active Substance: EZETIMIBE
  10. PREDNISONE. [Concomitant]
     Active Substance: PREDNISONE

REACTIONS (3)
  - Loss of consciousness [Unknown]
  - Myocardial infarction [Unknown]
  - Fall [Unknown]

NARRATIVE: CASE EVENT DATE: 2014
